FAERS Safety Report 6726643-8 (Version None)
Quarter: 2010Q2

REPORT INFORMATION
  Report Type: 
  Country: None (occurrence: None)
  Receive Date: 20100514
  Receipt Date: 20100504
  Transmission Date: 20101027
  Serious: Yes (Hospitalization)
  Sender: FDA-Public Use
  Company Number: DE-ABBOTT-10P-062-0634360-00

PATIENT
  Sex: Male
  Weight: 100 kg

DRUGS (9)
  1. HUMIRA [Suspect]
     Indication: PSORIATIC ARTHROPATHY
     Dates: start: 20091201, end: 20100303
  2. HUMIRA [Suspect]
     Dates: start: 20060401, end: 20090501
  3. CELECOXIB [Concomitant]
     Indication: PAIN
     Dosage: 200 MG DAILY
     Dates: start: 20030101
  4. SULFASALAZINE [Concomitant]
     Indication: PSORIATIC ARTHROPATHY
     Dates: start: 20030101
  5. HYDROCHLOROTHIAZIDE [Concomitant]
     Indication: HYPERTENSION
     Dosage: 25 MG DAILY
  6. ALLOPURINOL [Concomitant]
     Indication: HYPERURICAEMIA
  7. BISOPROLOL [Concomitant]
     Indication: HYPERTENSION
     Dosage: 5 MG DAILY
  8. BERINSULIN [Concomitant]
     Indication: TYPE 1 DIABETES MELLITUS
  9. KALINOR [Concomitant]
     Indication: HYPOKALAEMIA

REACTIONS (8)
  - ESCHERICHIA TEST POSITIVE [None]
  - PAIN [None]
  - RASH MACULO-PAPULAR [None]
  - SKIN LESION [None]
  - SKIN ULCER [None]
  - STAPHYLOCOCCUS TEST POSITIVE [None]
  - VASCULITIS NECROTISING [None]
  - WOUND COMPLICATION [None]
